FAERS Safety Report 5997037-8 (Version None)
Quarter: 2008Q4

REPORT INFORMATION
  Report Type: 
  Country: None (occurrence: None)
  Receive Date: 20081208
  Receipt Date: 20081127
  Transmission Date: 20090506
  Serious: Yes (Other)
  Sender: FDA-Public Use
  Company Number: CHPA2008CA21206

PATIENT
  Age: 79 Year
  Sex: Male

DRUGS (1)
  1. SCOPOLAMINE [Suspect]
     Dates: start: 20080801

REACTIONS (3)
  - HALLUCINATION [None]
  - MALAISE [None]
  - PSYCHOTIC DISORDER [None]
